FAERS Safety Report 4347300-1 (Version None)
Quarter: 2004Q2

REPORT INFORMATION
  Report Type: 
  Country: None (occurrence: None)
  Receive Date: 20040426
  Receipt Date: 20040426
  Transmission Date: 20050107
  Serious: Yes (Life-Threatening, Hospitalization)
  Sender: FDA-Public Use
  Company Number: None

PATIENT
  Age: 73 Year
  Sex: Male

DRUGS (1)
  1. NUBAIN [Suspect]
     Indication: PAIN
     Dosage: 5 MG IV ONCE
     Route: 042
     Dates: start: 20040425

REACTIONS (1)
  - DYSPNOEA [None]
